FAERS Safety Report 6769227-8 (Version None)
Quarter: 2010Q2

REPORT INFORMATION
  Report Type: 
  Country: None (occurrence: None)
  Receive Date: 20100615
  Receipt Date: 20100601
  Transmission Date: 20101027
  Serious: Yes (Hospitalization, Other)
  Sender: FDA-Public Use
  Company Number: JP-BAYER-201010832BYL

PATIENT
  Age: 68 Year
  Sex: Female

DRUGS (4)
  1. FLUDARA [Suspect]
     Indication: CORD BLOOD TRANSPLANT THERAPY
     Dosage: 125 MG/M2/DAY
     Route: 042
     Dates: start: 20070412, end: 20070416
  2. MELPHALAN HYDROCHLORIDE [Concomitant]
     Indication: CORD BLOOD TRANSPLANT THERAPY
     Route: 065
     Dates: start: 20070412
  3. TACROLIMUS HYDRATE [Concomitant]
     Indication: PROPHYLAXIS AGAINST GRAFT VERSUS HOST DISEASE
     Route: 065
     Dates: start: 20070418, end: 20070501
  4. CORTICOSTEROID [Concomitant]
     Indication: PROPHYLAXIS AGAINST GRAFT VERSUS HOST DISEASE
     Route: 065
     Dates: start: 20070101

REACTIONS (4)
  - ACUTE GRAFT VERSUS HOST DISEASE [None]
  - ENCEPHALOPATHY [None]
  - NEUROPATHY PERIPHERAL [None]
  - STAPHYLOCOCCAL SEPSIS [None]
